FAERS Safety Report 9594478 (Version 1)
Quarter: 2013Q3

REPORT INFORMATION
  Report Type: Spontaneous
  Country: US (occurrence: None)
  Receive Date: 20130923
  Receipt Date: 20130923
  Transmission Date: 20140515
  Serious: Yes (Hospitalization)
  Sender: FDA-Public Use
  Company Number: 2012STPI000780

PATIENT
  Age: 71 Year
  Sex: Male

DRUGS (1)
  1. MATULANE CAPSULES [Suspect]
     Indication: LYMPHOMA
     Route: 048
     Dates: start: 20121108

REACTIONS (1)
  - Upper respiratory tract infection [None]
